FAERS Safety Report 10334368 (Version 2)
Quarter: 2014Q3

REPORT INFORMATION
  Report Type: Report from Study
  Country: US (occurrence: US)
  Receive Date: 20140723
  Receipt Date: 20140804
  Transmission Date: 20150326
  Serious: Yes (Other)
  Sender: FDA-Public Use
  Company Number: US-ROCHE-1436802

PATIENT
  Sex: Male
  Weight: 31.7 kg

DRUGS (3)
  1. NUTROPIN AQ [Suspect]
     Active Substance: SOMATROPIN
     Indication: GROWTH HORMONE DEFICIENCY
     Route: 058
  2. ASPIRIN. [Concomitant]
     Active Substance: ASPIRIN
     Route: 065
  3. CETIRIZINE [Concomitant]
     Active Substance: CETIRIZINE HYDROCHLORIDE
     Dosage: PRN
     Route: 065

REACTIONS (11)
  - Epistaxis [Unknown]
  - Cerumen impaction [Unknown]
  - Dysuria [Unknown]
  - Iris hypopigmentation [Unknown]
  - Visual acuity reduced [Unknown]
  - Hypersensitivity [Unknown]
  - Skin abrasion [Unknown]
  - Contusion [Unknown]
  - Headache [Unknown]
  - Eye movement disorder [Unknown]
  - Testicular hypertrophy [Unknown]
